FAERS Safety Report 7645178-1 (Version None)
Quarter: 2011Q3

REPORT INFORMATION
  Report Type: 
  Country: None (occurrence: None)
  Receive Date: 20110725
  Receipt Date: 20110711
  Transmission Date: 20111222
  Serious: Yes (Other)
  Sender: FDA-Public Use
  Company Number: TPA2011A00516

PATIENT
  Age: 58 Year
  Sex: Female

DRUGS (2)
  1. COLCHICINE [Suspect]
     Indication: GOUT
     Dosage: GOUT
     Route: 048
     Dates: start: 20101101, end: 20110101
  2. ADENURIC (FEBUXOSTAT) [Suspect]
     Indication: GOUT
     Dosage: ORAL
     Route: 048
     Dates: start: 20101206, end: 20110118

REACTIONS (3)
  - BILIARY POLYP [None]
  - LIVER FUNCTION TEST ABNORMAL [None]
  - APOPTOSIS [None]
